FAERS Safety Report 6278582-7 (Version None)
Quarter: 2009Q3

REPORT INFORMATION
  Report Type: 
  Country: None (occurrence: None)
  Receive Date: 20090722
  Receipt Date: 20081113
  Transmission Date: 20100115
  Serious: No
  Sender: FDA-Public Use
  Company Number: US-BAUSCH-2008BL004830

PATIENT
  Age: 80 Year
  Sex: Male
  Weight: 81 kg

DRUGS (8)
  1. OPCON-A [Suspect]
     Indication: LACRIMATION INCREASED
     Route: 047
     Dates: start: 20081031, end: 20081107
  2. OPCON-A [Suspect]
     Indication: EYE PRURITUS
     Route: 047
     Dates: start: 20081031, end: 20081107
  3. PLAVIX [Concomitant]
     Indication: ANTICOAGULANT THERAPY
     Route: 048
     Dates: start: 19880101
  4. PROTONIX [Concomitant]
     Indication: GASTROOESOPHAGEAL REFLUX DISEASE
     Route: 048
     Dates: start: 19880101
  5. TOPROL-XL [Concomitant]
     Indication: HYPERTENSION
     Route: 048
     Dates: start: 19880101
  6. DIGOXIN [Concomitant]
     Indication: HEART RATE ABNORMAL
     Route: 048
     Dates: start: 19880101
  7. COUMADIN [Concomitant]
     Indication: ANTICOAGULANT THERAPY
     Route: 048
     Dates: start: 19880101
  8. TYLENOL ^JOHNSON + JOHNSON^ [Concomitant]
     Indication: HEADACHE
     Route: 048
     Dates: start: 19880101

REACTIONS (1)
  - DRUG INEFFECTIVE [None]
